FAERS Safety Report 10420539 (Version 1)
Quarter: 2014Q3

REPORT INFORMATION
  Report Type: Spontaneous
  Country: US (occurrence: None)
  Receive Date: 20140702
  Receipt Date: 20140702
  Transmission Date: 20150326
  Serious: Yes (Other)
  Sender: FDA-Public Use
  Company Number: PHEH2014US007167

PATIENT
  Age: 21 Year
  Sex: Male

DRUGS (1)
  1. FANAPT [Suspect]
     Active Substance: ILOPERIDONE
     Indication: AUTISM
     Dosage: 10 MG, UNK
     Dates: start: 20130408, end: 20140408

REACTIONS (1)
  - Weight increased [None]

NARRATIVE: CASE EVENT DATE: 20130408
